FAERS Safety Report 5087342-4 (Version None)
Quarter: 2006Q3

REPORT INFORMATION
  Report Type: 
  Country: None (occurrence: None)
  Receive Date: 20060823
  Receipt Date: 20060823
  Transmission Date: 20061208
  Serious: Yes (Other)
  Sender: FDA-Public Use
  Company Number: None

PATIENT
  Age: 37 Year
  Sex: Female
  Weight: 59 kg

DRUGS (1)
  1. DEXBROMPHENIRAMINE MALEATE AND PSEUDOEPHEDRINE SULFATE [Suspect]
     Indication: NASAL CONGESTION
     Dosage: 2FD  ORAL
     Route: 048
     Dates: start: 20060412, end: 20060412

REACTIONS (2)
  - RASH ERYTHEMATOUS [None]
  - RASH VESICULAR [None]
